FAERS Safety Report 19783736 (Version 2)
Quarter: 2021Q3

REPORT INFORMATION
  Report Type: Report from Study
  Country: US (occurrence: US)
  Receive Date: 20210903
  Receipt Date: 20210929
  Transmission Date: 20211014
  Serious: No
  Sender: FDA-Public Use
  Company Number: NVSC2021US199834

PATIENT
  Age: 61 Year
  Sex: Female

DRUGS (2)
  1. KESIMPTA [Suspect]
     Active Substance: OFATUMUMAB
     Indication: MULTIPLE SCLEROSIS
     Dosage: 20 MG, QW (SUBCUTNEOUS? BENEATH THE SKIN, USUALLY VIA INJECTION)
     Route: 058
     Dates: start: 20210823
  2. KESIMPTA [Suspect]
     Active Substance: OFATUMUMAB
     Dosage: 20 MG QW (SUBCUTANEOUS? BENEATH THE SKIN USUALLY VIA INJECTION)
     Route: 058
     Dates: start: 20210825

REACTIONS (3)
  - Product distribution issue [Unknown]
  - Fatigue [Not Recovered/Not Resolved]
  - Influenza like illness [Recovered/Resolved]

NARRATIVE: CASE EVENT DATE: 20210823
